FAERS Safety Report 11476681 (Version 1)
Quarter: 2015Q3

REPORT INFORMATION
  Report Type: Spontaneous
  Country: CA (occurrence: CA)
  Receive Date: 20150909
  Receipt Date: 20150909
  Transmission Date: 20151125
  Serious: Yes (Hospitalization, Other)
  Sender: FDA-Public Use
  Company Number: CA-TEVA-591840ACC

PATIENT
  Age: 2 Year
  Sex: Male
  Weight: 14 kg

DRUGS (48)
  1. DEXAMETHASONE. [Concomitant]
     Active Substance: DEXAMETHASONE
  2. PENTAMIDINE ISETHIONATE [Concomitant]
     Active Substance: PENTAMIDINE ISETHIONATE
  3. PREDNISONE. [Concomitant]
     Active Substance: PREDNISONE
  4. ZOLEDRONIC ACID [Concomitant]
     Active Substance: ZOLEDRONIC ACID
  5. CHOLECALCIFEROL [Concomitant]
     Active Substance: CHOLECALCIFEROL
  6. POTASSIUM [Concomitant]
     Active Substance: POTASSIUM
  7. TRIMETHOPRIM-SULFAMETHOXAZOLE [Concomitant]
     Active Substance: SULFAMETHOXAZOLE\TRIMETHOPRIM
  8. CALCIUM [Concomitant]
     Active Substance: CALCIUM
  9. FENTANYL. [Concomitant]
     Active Substance: FENTANYL
  10. FLUTICASONE [Concomitant]
     Active Substance: FLUTICASONE\FLUTICASONE PROPIONATE
  11. HYDROMORPHONE [Concomitant]
     Active Substance: HYDROMORPHONE
  12. MERCAPTOPURINE. [Concomitant]
     Active Substance: MERCAPTOPURINE
  13. METHOTREXATE [Concomitant]
     Active Substance: METHOTREXATE
  14. VINCRISTINE SULFATE INJECTION USP [Suspect]
     Active Substance: VINCRISTINE SULFATE
     Indication: ACUTE LYMPHOCYTIC LEUKAEMIA
     Route: 042
  15. VINCRISTINE SULFATE INJECTION USP [Suspect]
     Active Substance: VINCRISTINE SULFATE
     Route: 042
  16. ALLOPURINOL. [Concomitant]
     Active Substance: ALLOPURINOL
  17. AZITHROMYCIN [Concomitant]
     Active Substance: AZITHROMYCIN ANHYDROUS
  18. CEFOTAXIME [Concomitant]
     Active Substance: CEFOTAXIME SODIUM
  19. CLARITHROMYCIN. [Concomitant]
     Active Substance: CLARITHROMYCIN
  20. LANSOPRAZOLE. [Concomitant]
     Active Substance: LANSOPRAZOLE
  21. NYSTATIN. [Concomitant]
     Active Substance: NYSTATIN
  22. TIMENTIN [Concomitant]
     Active Substance: CLAVULANATE POTASSIUM\TICARCILLIN DISODIUM
     Route: 042
  23. CYTARABINE INJECTION [Concomitant]
     Active Substance: CYTARABINE
  24. DOXORUBICIN HYDROCHLORIDE INJECTION [Concomitant]
     Active Substance: DOXORUBICIN HYDROCHLORIDE
  25. FLUCONAZOLE INJECTION [Concomitant]
     Route: 042
  26. METOCLOPRAMIDE. [Concomitant]
     Active Substance: METOCLOPRAMIDE
  27. NIFEDIPINE. [Concomitant]
     Active Substance: NIFEDIPINE
  28. ONCASPAR [Concomitant]
     Active Substance: PEGASPARGASE
  29. TOBRAMYCIN INJECTION USP [Concomitant]
  30. VINCRISTINE SULFATE INJECTION USP [Suspect]
     Active Substance: VINCRISTINE SULFATE
     Route: 042
  31. FUROSEMIDE. [Concomitant]
     Active Substance: FUROSEMIDE
  32. HYDROCORTISONE. [Concomitant]
     Active Substance: HYDROCORTISONE
  33. L-ASPARAGINASE [Concomitant]
     Active Substance: ASPARAGINASE
     Route: 030
  34. LEUCOVORIN. [Concomitant]
     Active Substance: LEUCOVORIN
  35. METHOTRIMEPRAZINE [Concomitant]
     Active Substance: LEVOMEPROMAZINE
  36. POLYETHYLENE GLYCOL [Concomitant]
     Active Substance: POLYETHYLENE GLYCOLS
  37. URSODEOXYCHOLIC ACID [Concomitant]
     Active Substance: URSODIOL
  38. AMOXICILLIN/CLAVULANIC ACID [Concomitant]
     Active Substance: AMOXICILLIN\CLAVULANIC ACID
  39. DIMENHYDRINATE. [Concomitant]
     Active Substance: DIMENHYDRINATE
  40. ONDANSETRON [Concomitant]
     Active Substance: ONDANSETRON
  41. PIPERACILLIN/TAZOBACTAM [Concomitant]
     Active Substance: PIPERACILLIN SODIUM\TAZOBACTAM SODIUM
  42. SENNOSIDES. [Concomitant]
     Active Substance: SENNOSIDES
  43. ACETAMINOPHEN. [Concomitant]
     Active Substance: ACETAMINOPHEN
  44. CALCITRIOL. [Concomitant]
     Active Substance: CALCITRIOL
  45. GRANISETRON [Concomitant]
     Active Substance: GRANISETRON
  46. METHYLPREDNISOLONE NOS [Concomitant]
     Active Substance: METHYLPREDNISOLONE OR METHYLPREDNISOLONE ACETATE
  47. MORPHINE [Concomitant]
     Active Substance: MORPHINE
  48. RANITIDINE [Concomitant]
     Active Substance: RANITIDINE\RANITIDINE HYDROCHLORIDE

REACTIONS (4)
  - Gait disturbance [Not Recovered/Not Resolved]
  - Neuropathy peripheral [Not Recovered/Not Resolved]
  - Pain in extremity [Not Recovered/Not Resolved]
  - Limb deformity [Not Recovered/Not Resolved]
